FAERS Safety Report 21526027 (Version 3)
Quarter: 2022Q4

REPORT INFORMATION
  Report Type: Spontaneous
  Country: US (occurrence: US)
  Receive Date: 20221031
  Receipt Date: 20221216
  Transmission Date: 20230113
  Serious: Yes (Hospitalization, Other)
  Sender: FDA-Public Use
  Company Number: US-BRISTOL-MYERS SQUIBB COMPANY-2022-126763

PATIENT
  Age: 73 Year
  Sex: Female

DRUGS (1)
  1. POMALYST [Suspect]
     Active Substance: POMALIDOMIDE
     Indication: Plasma cell myeloma
     Dosage: 1 CAPSULE BY MOUTH DAILY ON DAYS 1-21, THEN 7 DAYS OFF FOR A 28 DAY CYCLE
     Route: 048
     Dates: start: 20221024

REACTIONS (10)
  - Upper respiratory tract infection [Recovered/Resolved]
  - Diabetes mellitus [Recovered/Resolved]
  - Peripheral swelling [Unknown]
  - Increased appetite [Unknown]
  - Abdominal pain [Unknown]
  - Urinary tract infection [Unknown]
  - Pneumonia [Unknown]
  - Hot flush [Unknown]
  - Oropharyngeal pain [Unknown]
  - Pollakiuria [Unknown]
